FAERS Safety Report 15221364 (Version 1)
Quarter: 2018Q3

REPORT INFORMATION
  Report Type: Spontaneous
  Country: US (occurrence: US)
  Receive Date: 20180731
  Receipt Date: 20180731
  Transmission Date: 20181010
  Serious: No
  Sender: FDA-Public Use
  Company Number: US-ASTRAZENECA-2018SE95226

PATIENT
  Age: 38 Year
  Sex: Female
  Weight: 62.1 kg

DRUGS (4)
  1. METOPROLOL TARTRATE. [Concomitant]
     Active Substance: METOPROLOL TARTRATE
     Indication: HYPERTENSION
  2. PROTONIX [Concomitant]
     Active Substance: PANTOPRAZOLE SODIUM
  3. BENTYL [Concomitant]
     Active Substance: DICYCLOMINE HYDROCHLORIDE
  4. OMEPRAZOLE. [Suspect]
     Active Substance: OMEPRAZOLE
     Indication: OESOPHAGEAL SPASM
     Dosage: GENERIC
     Route: 048
     Dates: start: 1999, end: 2013

REACTIONS (13)
  - Therapeutic response shortened [Unknown]
  - Menopause [Unknown]
  - Ovulation disorder [Unknown]
  - Muscle spasms [Recovered/Resolved]
  - Red blood cell morphology abnormal [Unknown]
  - Uterine leiomyoma [Recovered/Resolved]
  - Menorrhagia [Recovered/Resolved]
  - Starvation [Not Recovered/Not Resolved]
  - Burning sensation [Not Recovered/Not Resolved]
  - Angiopathy [Unknown]
  - Anaemia [Unknown]
  - Haemorrhage [Recovered/Resolved]
  - Drug ineffective [Unknown]

NARRATIVE: CASE EVENT DATE: 2003
